FAERS Safety Report 24444671 (Version 2)
Quarter: 2024Q4

REPORT INFORMATION
  Report Type: Report from Study
  Country: US (occurrence: US)
  Receive Date: 20241016
  Receipt Date: 20241017
  Transmission Date: 20250115
  Serious: No
  Sender: ROCHE
  Company Number: US-ROCHE-2996923

PATIENT
  Age: 79 Year
  Sex: Female

DRUGS (5)
  1. RITUXAN [Suspect]
     Active Substance: RITUXIMAB
     Indication: Glomerulonephritis
     Dosage: INFUSE 750MG INTRAVENOUSLY EVERY 6 MONTH(S)ON DAY 1 AND DAY 15? FREQUENCY TEXT:DAY 1 AND DAY 15
     Route: 042
  2. RITUXAN [Suspect]
     Active Substance: RITUXIMAB
     Indication: Nephritic syndrome
     Dosage: INFUSE 750MG INTRAVENOUSLY EVERY 6 MONTH(S)
     Route: 042
  3. RITUXAN [Suspect]
     Active Substance: RITUXIMAB
     Indication: Iron deficiency anaemia
     Route: 042
  4. KEFLEX [Concomitant]
     Active Substance: CEPHALEXIN
  5. PENICILLIN [Concomitant]
     Active Substance: PENICILLIN

REACTIONS (3)
  - Product prescribing error [Unknown]
  - Off label use [Unknown]
  - No adverse event [Unknown]
